FAERS Safety Report 10530760 (Version 1)
Quarter: 2014Q4

REPORT INFORMATION
  Report Type: Spontaneous
  Country: US (occurrence: None)
  Receive Date: 20141020
  Receipt Date: 20141020
  Transmission Date: 20150528
  Serious: Yes (Hospitalization)
  Sender: FDA-Public Use
  Company Number: None

PATIENT
  Age: 68 Year
  Sex: Male
  Weight: 72.1 kg

DRUGS (1)
  1. FERRIC NA GLUCONATE [Suspect]
     Active Substance: SODIUM FERRIC GLUCONATE COMPLEX
     Indication: IRON DEFICIENCY ANAEMIA
     Route: 042
     Dates: start: 20141009, end: 20141009

REACTIONS (6)
  - Anaphylactic reaction [None]
  - Tachycardia [None]
  - Chronic obstructive pulmonary disease [None]
  - Dyspnoea [None]
  - Abdominal pain [None]
  - Orthostatic hypotension [None]

NARRATIVE: CASE EVENT DATE: 20141009
